FAERS Safety Report 25731127 (Version 1)
Quarter: 2025Q3

REPORT INFORMATION
  Report Type: Spontaneous
  Country: US (occurrence: US)
  Receive Date: 20250827
  Receipt Date: 20250827
  Transmission Date: 20251020
  Serious: Yes (Other)
  Sender: PFIZER
  Company Number: US-PFIZER INC-PV202500102574

PATIENT
  Sex: Male

DRUGS (1)
  1. LORBRENA [Suspect]
     Active Substance: LORLATINIB
     Indication: Non-small cell lung cancer metastatic
     Dates: start: 2023

REACTIONS (13)
  - Neuropathy peripheral [Unknown]
  - Emotional disorder [Unknown]
  - Nausea [Unknown]
  - Headache [Recovered/Resolved]
  - Vomiting [Recovered/Resolved]
  - Brain fog [Unknown]
  - Memory impairment [Unknown]
  - Irritability [Unknown]
  - Crying [Unknown]
  - Weight increased [Unknown]
  - Cognitive disorder [Unknown]
  - Depressed mood [Unknown]
  - Fluid intake reduced [Recovering/Resolving]
